FAERS Safety Report 19957053 (Version 2)
Quarter: 2021Q4

REPORT INFORMATION
  Report Type: Report from Study
  Country: US (occurrence: US)
  Receive Date: 20211014
  Receipt Date: 20211206
  Transmission Date: 20220303
  Serious: Yes (Hospitalization)
  Sender: FDA-Public Use
  Company Number: US-PFIZER INC-202101337129

PATIENT
  Age: 19 Year
  Sex: Male
  Weight: 69 kg

DRUGS (12)
  1. VINCRISTINE SULFATE [Suspect]
     Active Substance: VINCRISTINE SULFATE
     Indication: Acute lymphocytic leukaemia
     Dosage: 2 MG, ONCE
     Route: 042
     Dates: start: 20210622
  2. RUXOLITINIB [Suspect]
     Active Substance: RUXOLITINIB
     Indication: Acute lymphocytic leukaemia
     Dosage: 85 MG, BID FOR 14 DAYS, TABLET
     Route: 048
     Dates: start: 20210622
  3. MERCAPTOPURINE [Suspect]
     Active Substance: MERCAPTOPURINE
     Indication: Acute lymphocytic leukaemia
     Dosage: 125 MG X 5 DAYS/WEEK, TABLET
     Route: 048
     Dates: start: 20210622, end: 20210903
  4. MERCAPTOPURINE [Suspect]
     Active Substance: MERCAPTOPURINE
     Dosage: 150 MG X2 DAYS/WEEK, TABLET
     Route: 048
     Dates: start: 20210622, end: 20210903
  5. MERCAPTOPURINE [Suspect]
     Active Substance: MERCAPTOPURINE
     Dosage: 50% LESS DOSE (62.5 MG X5 DAYS/WEEK), TABLET
     Route: 048
     Dates: start: 20210914
  6. MERCAPTOPURINE [Suspect]
     Active Substance: MERCAPTOPURINE
     Dosage: 50% LESS DOSE (75 MG X2 DAYS/WEEK), TABLET
     Route: 048
     Dates: start: 20210914
  7. METHOTREXATE [Suspect]
     Active Substance: METHOTREXATE
     Indication: Acute lymphocytic leukaemia
     Dosage: 35 MG, WEEKLY, TABLET
     Route: 048
     Dates: start: 20210629, end: 20210903
  8. METHOTREXATE [Suspect]
     Active Substance: METHOTREXATE
     Dosage: 50% LESS DOSE (17.5 MG, WEEKLY), TABLET
     Route: 048
     Dates: start: 20210914
  9. PREDNISONE [Suspect]
     Active Substance: PREDNISONE
     Indication: Acute lymphocytic leukaemia
     Dosage: 35 MG, BID X5 DAYS, TABLET
     Route: 048
     Dates: start: 20210622
  10. SULFAMETHOXAZOLE AND TRIMETHOPRIM [Concomitant]
     Active Substance: SULFAMETHOXAZOLE\TRIMETHOPRIM
     Dosage: UNK
     Dates: start: 201707
  11. VALTREX [Concomitant]
     Active Substance: VALACYCLOVIR HYDROCHLORIDE
     Dosage: UNK
     Dates: start: 20200528
  12. RIVAROXABAN [Concomitant]
     Active Substance: RIVAROXABAN
     Dosage: UNK
     Dates: start: 20210619

REACTIONS (1)
  - Febrile neutropenia [Recovered/Resolved]

NARRATIVE: CASE EVENT DATE: 20210903
